FAERS Safety Report 6365835-7 (Version None)
Quarter: 2009Q3

REPORT INFORMATION
  Report Type: 
  Country: None (occurrence: None)
  Receive Date: 20090919
  Receipt Date: 20090820
  Transmission Date: 20100115
  Serious: No
  Sender: FDA-Public Use
  Company Number: US-ABBOTT-09P-163-0593363-00

PATIENT
  Weight: 95.34 kg

DRUGS (1)
  1. HUMIRA [Suspect]
     Indication: CROHN'S DISEASE
     Dosage: LOADING DOSE OF 80 MG
     Route: 058
     Dates: start: 20090817, end: 20090817

REACTIONS (4)
  - COUGH [None]
  - FEELING ABNORMAL [None]
  - PYREXIA [None]
  - VOMITING [None]
